APPROVED DRUG PRODUCT: LIDOCAINE
Active Ingredient: LIDOCAINE
Strength: 5%
Dosage Form/Route: OINTMENT;TOPICAL
Application: A207810 | Product #001 | TE Code: AT
Applicant: ALKEM LABORATORIES LTD
Approved: Mar 10, 2017 | RLD: No | RS: No | Type: RX